FAERS Safety Report 17228571 (Version 3)
Quarter: 2020Q4

REPORT INFORMATION
  Report Type: Report from Study
  Country: None (occurrence: NL)
  Receive Date: 20200103
  Receipt Date: 20201022
  Transmission Date: 20210113
  Serious: Yes (Hospitalization, Other)
  Sender: FDA-Public Use
  Company Number: NL-ABBVIE-20K-114-3217503-00

PATIENT
  Sex: Female

DRUGS (2)
  1. DUODOPA [Suspect]
     Active Substance: CARBIDOPA\LEVODOPA
     Indication: PARKINSON^S DISEASE
     Dosage: MD 9.2 ML; CD 4.5 ML/H; ED 4.0 ML; CND 2.7 ML/H, REMAINS AT 24 HOURS
     Route: 050
     Dates: start: 20180312
  2. DUODOPA [Suspect]
     Active Substance: CARBIDOPA\LEVODOPA

REACTIONS (7)
  - Nausea [Unknown]
  - Pulmonary embolism [Recovered/Resolved]
  - Diarrhoea [Unknown]
  - Blood potassium decreased [Unknown]
  - Deep vein thrombosis [Recovered/Resolved]
  - Vomiting [Unknown]
  - Asthenia [Unknown]

NARRATIVE: CASE EVENT DATE: 2019
